FAERS Safety Report 11319068 (Version 1)
Quarter: 2015Q3

REPORT INFORMATION
  Report Type: Spontaneous
  Country: US (occurrence: None)
  Receive Date: 20150727
  Receipt Date: 20150727
  Transmission Date: 20151125
  Serious: Yes (Hospitalization)
  Sender: FDA-Public Use
  Company Number: 2015PL000142

PATIENT
  Age: 47 Year
  Sex: Male

DRUGS (1)
  1. AZATHIOPRINE (AZATHIPRINE) TABLET [Suspect]
     Active Substance: AZATHIOPRINE
     Indication: MYASTHENIA GRAVIS
     Dosage: 200 MG, DAILY, ORAL?DUARTION 365 DAYS
     Route: 048

REACTIONS (4)
  - Acute hepatic failure [None]
  - Cholestasis [None]
  - Hepatotoxicity [None]
  - Hepatitis [None]
